FAERS Safety Report 4778122-5 (Version None)
Quarter: 2005Q3

REPORT INFORMATION
  Report Type: 
  Country: None (occurrence: None)
  Receive Date: 20050926
  Receipt Date: 20050802
  Transmission Date: 20060218
  Serious: Yes (Hospitalization)
  Sender: FDA-Public Use
  Company Number: PHNU2005DE02745

PATIENT
  Age: 74 Year
  Sex: Female
  Weight: 100 kg

DRUGS (11)
  1. ZOMETA [Suspect]
     Indication: BREAST CANCER METASTATIC
     Dosage: 4 MG, ONCE/SINGLE
     Route: 042
     Dates: start: 20050506, end: 20050506
  2. ZOMETA [Suspect]
     Dosage: 4 MG, ONCE/SINGLE
     Route: 042
     Dates: start: 20050602, end: 20050602
  3. ZOMETA [Suspect]
     Dosage: 4 MG, ONCE/SINGLE
     Route: 042
     Dates: start: 20050727, end: 20050727
  4. ZOMETA [Suspect]
     Dosage: 4 MG, ONCE/SINGLE
     Route: 042
     Dates: start: 20050630, end: 20050630
  5. GLUCOPHAGE [Concomitant]
     Indication: DIABETES MELLITUS
     Route: 048
  6. EUGLUCON [Concomitant]
     Indication: DIABETES MELLITUS
     Dosage: 3 DF/DAY
     Route: 048
  7. CAPTOPRIL AND HYDROCHLOROTHIAZIDE [Concomitant]
     Dosage: 1 DF, BID
     Route: 048
  8. METO-TABLINEN [Concomitant]
     Dosage: 50 MG, QD
  9. EBRANTIL [Concomitant]
     Dosage: 60 MG, QD
  10. MESCORIT [Concomitant]
     Dosage: 85 MG, BID
  11. MEVINACOR [Concomitant]
     Dosage: 10 MG, QD

REACTIONS (11)
  - ASTHENIA [None]
  - BLOOD GLUCOSE INCREASED [None]
  - DEHYDRATION [None]
  - DIARRHOEA [None]
  - FLUID INTAKE REDUCED [None]
  - GENERAL PHYSICAL CONDITION ABNORMAL [None]
  - HYPERGLYCAEMIA [None]
  - HYPOGLYCAEMIA [None]
  - NAUSEA [None]
  - PYREXIA [None]
  - SYNCOPE [None]
